FAERS Safety Report 9495757 (Version 2)
Quarter: 2013Q3

REPORT INFORMATION
  Report Type: Report from Study
  Country: BR (occurrence: BR)
  Receive Date: 20130903
  Receipt Date: 20130912
  Transmission Date: 20140515
  Serious: Yes (Hospitalization, Other)
  Sender: FDA-Public Use
  Company Number: ALCN2013BR004363

PATIENT
  Sex: 0

DRUGS (2)
  1. TRAVATAN [Suspect]
     Indication: GLAUCOMA
     Dosage: 1 GTT, QD
     Route: 047
  2. AZORGA [Suspect]
     Indication: GLAUCOMA
     Dosage: 2 GTT, UNK
     Route: 047

REACTIONS (1)
  - Cerebrovascular accident [Unknown]
